FAERS Safety Report 8491488-8 (Version None)
Quarter: 2012Q3

REPORT INFORMATION
  Report Type: 
  Country: None (occurrence: None)
  Receive Date: 20120706
  Receipt Date: 20120703
  Transmission Date: 20120928
  Serious: Yes (Hospitalization)
  Sender: FDA-Public Use
  Company Number: FR-PFIZER INC-2012158831

PATIENT
  Age: 72 Year
  Sex: Male

DRUGS (2)
  1. IRINOTECAN HCL [Suspect]
     Indication: COLON CANCER
     Dosage: 336 MG, UNK
     Route: 042
     Dates: start: 20120418, end: 20120418
  2. AVASTIN [Suspect]
     Indication: COLON CANCER
     Dosage: 405 MG, UNK
     Route: 042
     Dates: start: 20120418, end: 20120418

REACTIONS (2)
  - LARGE INTESTINE PERFORATION [None]
  - PERITONITIS [None]
